FAERS Safety Report 10150957 (Version 1)
Quarter: 2014Q2

REPORT INFORMATION
  Report Type: Report from Study
  Country: AR (occurrence: AR)
  Receive Date: 20140502
  Receipt Date: 20140502
  Transmission Date: 20141212
  Serious: Yes (Other)
  Sender: FDA-Public Use
  Company Number: PHHY2014AR053183

PATIENT
  Age: 66 Year
  Sex: Male

DRUGS (2)
  1. DIOVAN [Suspect]
     Indication: HYPERTENSION
     Dosage: 1 DF DAILY
     Route: 048
  2. DIOVAN [Suspect]
     Dosage: 2 DF DAILY
     Route: 048

REACTIONS (3)
  - Cerebrovascular accident [Unknown]
  - Diplopia [Unknown]
  - Gait disturbance [Unknown]
